FAERS Safety Report 6876836-4 (Version None)
Quarter: 2010Q3

REPORT INFORMATION
  Report Type: 
  Country: None (occurrence: None)
  Receive Date: 20100727
  Receipt Date: 20100713
  Transmission Date: 20110219
  Serious: Yes (Congenital Anomaly)
  Sender: FDA-Public Use
  Company Number: GB-MYLANLABS-2010S1012562

PATIENT
  Sex: Female

DRUGS (2)
  1. ONDANSETRON [Suspect]
     Route: 064
  2. CYCLIZINE [Suspect]
     Route: 064

REACTIONS (2)
  - ANAL ATRESIA [None]
  - DRUG EXPOSURE DURING PREGNANCY [None]
